FAERS Safety Report 23543234 (Version 1)
Quarter: 2024Q1

REPORT INFORMATION
  Report Type: Spontaneous
  Country: GB (occurrence: GB)
  Receive Date: 20240220
  Receipt Date: 20240220
  Transmission Date: 20240410
  Serious: Yes (Other)
  Sender: FDA-Public Use
  Company Number: GB-AMGEN-GBRSP2024031339

PATIENT
  Age: 36 Year
  Sex: Male

DRUGS (2)
  1. VECTIBIX [Suspect]
     Active Substance: PANITUMUMAB
     Indication: Gene mutation
     Dosage: 6 MILLIGRAM/KILOGRAM
     Route: 065
  2. VECTIBIX [Suspect]
     Active Substance: PANITUMUMAB
     Indication: Off label use

REACTIONS (3)
  - Metastases to central nervous system [Unknown]
  - Seizure [Unknown]
  - Off label use [Unknown]
